FAERS Safety Report 9187343 (Version 3)
Quarter: 2013Q2

REPORT INFORMATION
  Report Type: Spontaneous
  Country: CH (occurrence: CH)
  Receive Date: 20130325
  Receipt Date: 20130412
  Transmission Date: 20140414
  Serious: Yes (Hospitalization, Other)
  Sender: FDA-Public Use
  Company Number: CH-AMGEN-CHESP2013018965

PATIENT
  Age: 77 Year
  Sex: Female

DRUGS (5)
  1. PROLIA [Suspect]
     Indication: OSTEOPOROSIS POSTMENOPAUSAL
     Dosage: 60 MG, UNK
     Route: 058
     Dates: start: 20120501
  2. PREDNISONE [Concomitant]
  3. SALAZOPYRIN [Concomitant]
  4. TRAMAL [Concomitant]
  5. CAL D                              /00944201/ [Concomitant]

REACTIONS (3)
  - Device related infection [Recovered/Resolved]
  - Arthritis bacterial [Recovered/Resolved]
  - Sepsis [Recovered/Resolved]
